FAERS Safety Report 10975423 (Version 1)
Quarter: 2015Q2

REPORT INFORMATION
  Report Type: Spontaneous
  Country: US (occurrence: US)
  Receive Date: 20150401
  Receipt Date: 20150401
  Transmission Date: 20150821
  Serious: No
  Sender: FDA-Public Use
  Company Number: US-009507513-1503USA013582

PATIENT
  Age: 53 Year
  Sex: Male

DRUGS (2)
  1. BELSOMRA [Suspect]
     Active Substance: SUVOREXANT
     Indication: INSOMNIA
     Dosage: 5 MG, UNK
     Route: 048
     Dates: start: 20150211, end: 20150211
  2. HALOPERIDOL. [Interacting]
     Active Substance: HALOPERIDOL

REACTIONS (4)
  - Seizure like phenomena [Recovered/Resolved]
  - Dyskinesia [Recovered/Resolved]
  - Wrong technique in drug usage process [Unknown]
  - Drug interaction [Unknown]

NARRATIVE: CASE EVENT DATE: 20150211
